FAERS Safety Report 5103792-1 (Version None)
Quarter: 2006Q3

REPORT INFORMATION
  Report Type: 
  Country: None (occurrence: None)
  Receive Date: 20060911
  Receipt Date: 20060829
  Transmission Date: 20061208
  Serious: Yes (Other)
  Sender: FDA-Public Use
  Company Number: 2006105555

PATIENT
  Age: 84 Year
  Sex: Female

DRUGS (4)
  1. EXEMESTANE [Suspect]
     Indication: BREAST CANCER RECURRENT
     Dosage: ORAL
     Route: 048
     Dates: start: 20060101
  2. FLUOXYMESTERONE [Suspect]
     Indication: APLASTIC ANAEMIA
     Dosage: ORAL
     Route: 048
     Dates: start: 20030101
  3. SANDIMMUNE [Concomitant]
  4. ATG (ANTILYMPHOCYTE IMMUNOGLOBULIN (HORSE)) [Concomitant]

REACTIONS (6)
  - APLASTIC ANAEMIA [None]
  - BREAST CANCER RECURRENT [None]
  - CONDITION AGGRAVATED [None]
  - DRUG INTERACTION [None]
  - GENERAL PHYSICAL HEALTH DETERIORATION [None]
  - METASTASES TO LYMPH NODES [None]
